FAERS Safety Report 5674771-0 (Version None)
Quarter: 2008Q1

REPORT INFORMATION
  Report Type: 
  Country: None (occurrence: None)
  Receive Date: 20080320
  Receipt Date: 20080310
  Transmission Date: 20080703
  Serious: Yes (Other)
  Sender: FDA-Public Use
  Company Number: GB-MERCK-0801GBR00096

PATIENT
  Age: 69 Year
  Sex: Male
  Weight: 73 kg

DRUGS (4)
  1. PROSCAR [Suspect]
     Indication: BENIGN PROSTATIC HYPERPLASIA
     Route: 048
     Dates: start: 20071124, end: 20071201
  2. BECLOMETHASONE DIPROPIONATE [Concomitant]
     Dates: start: 20070103
  3. BECLOMETHASONE DIPROPIONATE [Concomitant]
     Route: 065
     Dates: start: 20071124
  4. ALBUTEROL [Concomitant]
     Dates: start: 20070226

REACTIONS (2)
  - TESTICULAR MASS [None]
  - TESTICULAR PAIN [None]
